FAERS Safety Report 4726429-X (Version None)
Quarter: 2005Q3

REPORT INFORMATION
  Report Type: 
  Country: None (occurrence: None)
  Receive Date: 20050725
  Receipt Date: 20050413
  Transmission Date: 20060218
  Serious: Yes (Hospitalization, Other)
  Sender: FDA-Public Use
  Company Number: 2005BI007656

PATIENT
  Age: 45 Year
  Sex: Female

DRUGS (4)
  1. AVONEX [Suspect]
     Indication: MULTIPLE SCLEROSIS
     Dosage: 30 UG; QW; IM
     Route: 030
     Dates: start: 20011101
  2. AVONEX [Suspect]
     Indication: MULTIPLE SCLEROSIS
     Dosage: 30 UG; QW; IM
     Route: 030
  3. DEPAKOTE [Concomitant]
  4. PROZAC [Concomitant]

REACTIONS (5)
  - BALANCE DISORDER [None]
  - GRAND MAL CONVULSION [None]
  - HYPOAESTHESIA [None]
  - PETIT MAL EPILEPSY [None]
  - VISUAL DISTURBANCE [None]
